FAERS Safety Report 6211487-6 (Version None)
Quarter: 2009Q2

REPORT INFORMATION
  Report Type: 
  Country: None (occurrence: None)
  Receive Date: 20090602
  Receipt Date: 20090522
  Transmission Date: 20091009
  Serious: Yes (Hospitalization)
  Sender: FDA-Public Use
  Company Number: FR-ABBOTT-09P-056-0575303-00

PATIENT
  Age: 81 Year
  Sex: Female

DRUGS (10)
  1. VERCYTE [Suspect]
     Indication: ESSENTIAL THROMBOCYTHAEMIA
     Route: 048
     Dates: end: 20090310
  2. BISOPROLOL [Concomitant]
     Indication: DRUG USE FOR UNKNOWN INDICATION
  3. PREVISCAN [Concomitant]
     Indication: DRUG USE FOR UNKNOWN INDICATION
  4. FLECAINIDE ACETATE [Concomitant]
     Indication: DRUG USE FOR UNKNOWN INDICATION
  5. TEVETEN [Concomitant]
     Indication: DRUG USE FOR UNKNOWN INDICATION
  6. ZYLORIC [Concomitant]
     Indication: DRUG USE FOR UNKNOWN INDICATION
  7. LASIX [Concomitant]
     Indication: DRUG USE FOR UNKNOWN INDICATION
  8. KALEORID [Concomitant]
     Indication: DRUG USE FOR UNKNOWN INDICATION
  9. BRICANYL [Concomitant]
     Indication: DRUG USE FOR UNKNOWN INDICATION
  10. ATROVENT [Concomitant]
     Indication: DRUG USE FOR UNKNOWN INDICATION

REACTIONS (2)
  - ACUTE MYELOID LEUKAEMIA [None]
  - ANAEMIA [None]
